FAERS Safety Report 9509728 (Version 2)
Quarter: 2013Q3

REPORT INFORMATION
  Report Type: Report from Study
  Country: BE (occurrence: BE)
  Receive Date: 20130909
  Receipt Date: 20130909
  Transmission Date: 20140515
  Serious: Yes (Hospitalization, Other)
  Sender: FDA-Public Use
  Company Number: BE-ABBOTT-13P-013-1117415-00

PATIENT
  Age: 76 Year
  Sex: Male
  Weight: 74 kg

DRUGS (11)
  1. HUMIRA [Suspect]
     Indication: RHEUMATOID ARTHRITIS
     Route: 058
     Dates: start: 20080625
  2. CARDIOASPIRIN [Concomitant]
     Indication: PROPHYLAXIS
  3. BELSAR PLUS [Concomitant]
     Indication: HYPERTENSION
  4. OMEPRAZOL [Concomitant]
     Indication: ABDOMINAL DISCOMFORT
  5. AMLOR [Concomitant]
     Indication: HYPERTENSION
  6. SIMVASTATINE [Concomitant]
     Indication: HYPERCHOLESTEROLAEMIA
  7. BISOPROLOL [Concomitant]
     Indication: HYPERTENSION
  8. METHOTREXATE (LEDERTREXATE) [Concomitant]
     Indication: RHEUMATOID ARTHRITIS
     Dates: start: 199812
  9. FOLIC ACID [Concomitant]
     Indication: RHEUMATOID ARTHRITIS
     Dates: start: 199812
  10. NITROGLYCERIN (MINITRAN) [Concomitant]
     Indication: PROPHYLAXIS
  11. NITROGLYCERIN (MINITRAN) [Concomitant]
     Indication: ANGINA PECTORIS

REACTIONS (2)
  - Nail disorder [Recovered/Resolved]
  - Squamous cell carcinoma [Recovered/Resolved]
